FAERS Safety Report 7019986-4 (Version None)
Quarter: 2010Q3

REPORT INFORMATION
  Report Type: 
  Country: None (occurrence: None)
  Receive Date: 20100929
  Receipt Date: 20100917
  Transmission Date: 20110219
  Serious: Yes (Hospitalization)
  Sender: FDA-Public Use
  Company Number: CA-JNJFOC-20100906615

PATIENT
  Sex: Female
  Weight: 60 kg

DRUGS (2)
  1. REMICADE [Suspect]
     Indication: CROHN'S DISEASE
     Dosage: A TOTAL OF 52 WEEKS
     Route: 042
  2. SOLU-CORTEF [Concomitant]
     Indication: PREMEDICATION
     Route: 042

REACTIONS (1)
  - HOSPITALISATION [None]
